FAERS Safety Report 9464181 (Version 2)
Quarter: 2013Q4

REPORT INFORMATION
  Report Type: Spontaneous
  Country: US (occurrence: US)
  Receive Date: 20130819
  Receipt Date: 20131206
  Transmission Date: 20140711
  Serious: Yes (Hospitalization)
  Sender: FDA-Public Use
  Company Number: US-BAYER-2013-099292

PATIENT
  Age: 43 Year
  Sex: Female

DRUGS (22)
  1. YAZ [Suspect]
     Indication: PREMENSTRUAL DYSPHORIC DISORDER
     Dosage: UNK
     Dates: start: 20070911, end: 201004
  2. YAZ [Suspect]
     Indication: PREMENSTRUAL SYNDROME
  3. OCELLA [Suspect]
     Indication: PREMENSTRUAL DYSPHORIC DISORDER
     Dosage: UNK
     Dates: start: 20100424, end: 201012
  4. OCELLA [Suspect]
     Indication: PREMENSTRUAL SYNDROME
  5. YASMIN [Suspect]
  6. IBUPROFEN [Concomitant]
     Dosage: 200 MG, PRN
     Route: 048
  7. NITROGLYCERIN [Concomitant]
     Dosage: 0.4 MG, UNK
     Route: 060
  8. ATIVAN [Concomitant]
     Dosage: 0.5 MG, HS
     Route: 048
  9. BISOPROLOL [Concomitant]
     Dosage: 5 MG, QD
  10. CELEXA [Concomitant]
     Dosage: 10 MG, QOD
     Route: 048
  11. CYTOMEL [Concomitant]
     Dosage: 25 MG, QD
     Route: 048
  12. SYNTHROID [Concomitant]
     Dosage: 112 ?G, QD
     Route: 048
  13. WELLBUTRIN XL [Concomitant]
     Dosage: 300 MG, UNK
     Route: 048
  14. XANAX [Concomitant]
     Dosage: 0.5 MG, QD
     Route: 048
  15. BENADRYL [Concomitant]
     Dosage: 25 MG, 2 HS
     Route: 048
  16. BIOMOX [Concomitant]
     Dosage: 0.375 MG, QD
  17. CALCIUM [Concomitant]
     Dosage: UNK UNK, PRN
  18. MAGNESIUM [Concomitant]
     Dosage: UNK UNK, PRN
  19. MIRALAX [Concomitant]
     Dosage: UNK UNK, PRN
     Route: 048
  20. PERCOCET [Concomitant]
     Dosage: UNK UNK, PRN
  21. PROAIR HFA [Concomitant]
     Dosage: UNK UNK, PRN
  22. TUMS [CALCIUM CARBONATE] [Concomitant]
     Route: 048

REACTIONS (12)
  - Pulmonary embolism [Recovered/Resolved]
  - Thrombosis [None]
  - Thrombophlebitis superficial [Recovered/Resolved]
  - Deep vein thrombosis [Recovered/Resolved]
  - Injury [Recovered/Resolved]
  - Pain [Recovered/Resolved]
  - Dyspnoea [Recovered/Resolved]
  - Muscle spasms [None]
  - Pain in extremity [None]
  - Dizziness [None]
  - Asthenia [None]
  - Headache [None]
